FAERS Safety Report 6874720-3 (Version None)
Quarter: 2010Q3

REPORT INFORMATION
  Report Type: 
  Country: None (occurrence: None)
  Receive Date: 20100723
  Receipt Date: 20100615
  Transmission Date: 20110219
  Serious: No
  Sender: FDA-Public Use
  Company Number: GW FILE C-10-057

PATIENT
  Sex: Female

DRUGS (1)
  1. BACITRACIN TOPICAL OINTMENT [Suspect]
     Indication: ANTI-INFECTIVE THERAPY
     Dosage: EXTERNAL

REACTIONS (1)
  - HYPERSENSITIVITY [None]
